FAERS Safety Report 17805045 (Version 1)
Quarter: 2020Q2

REPORT INFORMATION
  Report Type: Spontaneous
  Country: IT (occurrence: IT)
  Receive Date: 20200520
  Receipt Date: 20200520
  Transmission Date: 20200714
  Serious: Yes (Hospitalization, Other)
  Sender: FDA-Public Use
  Company Number: IT-BRISTOL-MYERS SQUIBB COMPANY-BMS-2020-039196

PATIENT
  Age: 72 Year
  Sex: Male
  Weight: 90 kg

DRUGS (1)
  1. OPDIVO [Suspect]
     Active Substance: NIVOLUMAB
     Indication: CLEAR CELL RENAL CELL CARCINOMA
     Dosage: 480 MILLIGRAM/SQ. METER, CYCLICAL
     Route: 042
     Dates: start: 20181108, end: 20200313

REACTIONS (3)
  - Rash erythematous [Unknown]
  - Dermatitis bullous [Unknown]
  - Urticaria [Unknown]

NARRATIVE: CASE EVENT DATE: 20200412
